FAERS Safety Report 9196582 (Version 1)
Quarter: 2013Q1

REPORT INFORMATION
  Report Type: Spontaneous
  Country: US (occurrence: None)
  Receive Date: 20120709
  Receipt Date: 20120709
  Transmission Date: 20140127
  Serious: Yes (Other)
  Sender: FDA-Public Use
  Company Number: PHHY2011US49947

PATIENT
  Age: 71 Year
  Sex: Female
  Weight: 87 kg

DRUGS (18)
  1. GLEEVEC [Suspect]
     Indication: GASTROINTESTINAL STROMAL TUMOUR
     Route: 048
     Dates: start: 20110119, end: 20110601
  2. LASIX (FUROSEMIDE) [Concomitant]
  3. DIGITEX (DIGOXIN) [Concomitant]
  4. PROZAC (FLUOXETIN HYDROCHLORIDE) [Concomitant]
  5. POTASSIUM (POTASSIUM) [Concomitant]
  6. SIMVASTATIN (SIMVASTATIN) [Concomitant]
  7. BABY ASPIRIN (ACETYLSALICYLIC ACID) [Concomitant]
  8. TRAMADOL (TRAMADOL) [Concomitant]
  9. FLEXERIL (CYCLOBENZAPRINE HYDROCHLORIDE) [Concomitant]
  10. CALCIUM  (CALCIUM) [Concomitant]
  11. MAGNESIUM (MAGNESIUM) [Concomitant]
  12. VITAMIN B12 (CYANOCOBALAMIN) [Concomitant]
  13. LISINOPRIL (LISINOPRIL) [Concomitant]
  14. LEVOTHYROXINE (LEVOTHYROXINE) [Concomitant]
  15. ALLEGRA [Concomitant]
  16. IBUPROFEN (IBUPROFEN) [Concomitant]
  17. PRAVASTATIN (PRAVASTATIN) [Concomitant]
  18. SUTENT (SUNITINIB MALATE) [Concomitant]

REACTIONS (6)
  - Metastases to liver [None]
  - Gastrointestinal stromal tumour [None]
  - Neoplasm malignant [None]
  - Nausea [None]
  - Gastrooesophageal reflux disease [None]
  - Myalgia [None]
